FAERS Safety Report 5086033-3 (Version None)
Quarter: 2006Q3

REPORT INFORMATION
  Report Type: 
  Country: None (occurrence: None)
  Receive Date: 20060817
  Receipt Date: 20060804
  Transmission Date: 20061208
  Serious: Yes (Other)
  Sender: FDA-Public Use
  Company Number: SPV1-2006-00350

PATIENT
  Sex: 0

DRUGS (1)
  1. CARBAMAZEPINE [Suspect]

REACTIONS (5)
  - DRUG TOXICITY [None]
  - HEPATOSPLENOMEGALY [None]
  - LYMPHADENOPATHY [None]
  - PYREXIA [None]
  - RASH ERYTHEMATOUS [None]
